FAERS Safety Report 19545102 (Version 2)
Quarter: 2021Q3

REPORT INFORMATION
  Report Type: Report from Study
  Country: US (occurrence: US)
  Receive Date: 20210713
  Receipt Date: 20210826
  Transmission Date: 20211014
  Serious: No
  Sender: FDA-Public Use
  Company Number: NVSC2021US149269

PATIENT
  Age: 66 Year
  Sex: Female

DRUGS (1)
  1. ENTRESTO [Suspect]
     Active Substance: SACUBITRIL\VALSARTAN
     Indication: CARDIAC FAILURE
     Dosage: 1 DF, BID
     Route: 065
     Dates: start: 20200517

REACTIONS (2)
  - Movement disorder [Unknown]
  - Weight increased [Unknown]

NARRATIVE: CASE EVENT DATE: 20210630
